FAERS Safety Report 5480786-8 (Version None)
Quarter: 2007Q4

REPORT INFORMATION
  Report Type: 
  Country: None (occurrence: None)
  Receive Date: 20071009
  Receipt Date: 20070925
  Transmission Date: 20080405
  Serious: Yes (Hospitalization, Other)
  Sender: FDA-Public Use
  Company Number: US-RANBAXY-2007US-10294

PATIENT

DRUGS (2)
  1. MINOCYCLINE HYDROCHLORIDE [Suspect]
     Indication: ACNE
     Dosage: 50 MG, BID
     Dates: end: 20041103
  2. MINOCYCLINE HYDROCHLORIDE [Suspect]
     Dosage: 100 MG, BID
     Dates: start: 20041103, end: 20041210

REACTIONS (7)
  - BENIGN INTRACRANIAL HYPERTENSION [None]
  - DIPLOPIA [None]
  - EYE PAIN [None]
  - INTRACRANIAL VENOUS SINUS THROMBOSIS [None]
  - LUMBOPERITONEAL SHUNT [None]
  - PAPILLOEDEMA [None]
  - VITH NERVE PARALYSIS [None]
